FAERS Safety Report 10336855 (Version 1)
Quarter: 2014Q3

REPORT INFORMATION
  Report Type: Spontaneous
  Country: GB (occurrence: GB)
  Receive Date: 20140723
  Receipt Date: 20140723
  Transmission Date: 20150326
  Serious: Yes (Other)
  Sender: FDA-Public Use
  Company Number: PHHY2014GB087616

PATIENT
  Age: 16 Year
  Sex: Female
  Weight: 57.6 kg

DRUGS (4)
  1. PROPRANOLOL [Concomitant]
     Active Substance: PROPRANOLOL\PROPRANOLOL HYDROCHLORIDE
     Dates: start: 20140627, end: 20140704
  2. SUMATRIPTAN [Suspect]
     Active Substance: SUMATRIPTAN
     Dosage: TOOK 50MG SUMATRIPTAN FOR MIGRAINE AND REPEATED DOSE 2 HOURS LATER.
     Route: 048
     Dates: start: 20140704
  3. CODEINE PHOSPHATE [Concomitant]
     Active Substance: CODEINE PHOSPHATE
     Dates: start: 20140613, end: 20140620
  4. PARACETAMOL [Concomitant]
     Active Substance: ACETAMINOPHEN
     Dates: start: 20140620, end: 20140624

REACTIONS (3)
  - Musculoskeletal stiffness [Recovered/Resolved]
  - Slow speech [Recovered/Resolved]
  - Dysarthria [Recovered/Resolved]

NARRATIVE: CASE EVENT DATE: 20140704
